FAERS Safety Report 23675928 (Version 1)
Quarter: 2024Q1

REPORT INFORMATION
  Report Type: Spontaneous
  Country: US (occurrence: US)
  Receive Date: 20240327
  Receipt Date: 20240327
  Transmission Date: 20240409
  Serious: No
  Sender: FDA-Public Use
  Company Number: US-SA-SAC20240325000372

PATIENT
  Age: 37 Year
  Sex: Male

DRUGS (1)
  1. REZUROCK [Suspect]
     Active Substance: BELUMOSUDIL
     Indication: Graft versus host disease
     Dosage: 200 MG, QD
     Route: 048
     Dates: start: 20230603

REACTIONS (9)
  - Hypoaesthesia [Unknown]
  - Rash [Unknown]
  - Medial tibial stress syndrome [Unknown]
  - Pain in extremity [Unknown]
  - Pyrexia [Unknown]
  - Muscle spasms [Unknown]
  - Tension headache [Unknown]
  - Decreased appetite [Unknown]
  - Product dose omission issue [Unknown]
